FAERS Safety Report 5187320-0 (Version None)
Quarter: 2006Q4

REPORT INFORMATION
  Report Type: 
  Country: None (occurrence: None)
  Receive Date: 20061213
  Receipt Date: 20061128
  Transmission Date: 20070319
  Serious: Yes (Death, Hospitalization, Other)
  Sender: FDA-Public Use
  Company Number: A-US2005-09512

PATIENT
  Age: 65 Year
  Sex: Female

DRUGS (21)
  1. TRACLEER [Suspect]
     Indication: PULMONARY HYPERTENSION
     Dosage: 125 MG, BID, ORAL; 62.5 MG, BID, ORAL; 125 MG, BID, ORAL
     Route: 048
     Dates: end: 20050317
  2. TRACLEER [Suspect]
     Indication: PULMONARY HYPERTENSION
     Dosage: 125 MG, BID, ORAL; 62.5 MG, BID, ORAL; 125 MG, BID, ORAL
     Route: 048
     Dates: start: 20050318, end: 20050502
  3. TRACLEER [Suspect]
     Indication: PULMONARY HYPERTENSION
     Dosage: 125 MG, BID, ORAL; 62.5 MG, BID, ORAL; 125 MG, BID, ORAL
     Route: 048
     Dates: start: 20050503, end: 20061127
  4. TRACLEER [Suspect]
     Indication: PULMONARY HYPERTENSION
     Dosage: 125 MG, BID, ORAL; 62.5 MG, BID, ORAL; 125 MG, BID, ORAL
     Route: 048
     Dates: start: 20040701
  5. CALCIUM(CALCIUM CARBONATE) [Suspect]
  6. PREDNISONE TAB [Concomitant]
  7. COUMADIN [Concomitant]
  8. LEVOTHYROXINE SODIUM [Concomitant]
  9. TRAZODONE HCL [Concomitant]
  10. MORPHINE [Concomitant]
  11. LASIX [Concomitant]
  12. POTASSIUM (POTASSIUM CHLORIDE, POTASSIUM BICARBONATE) [Concomitant]
  13. AMLODIPINE [Concomitant]
  14. ADVAIR (SALMETEROL XINAFOATE, FLUTICASONE PROPIONATE) [Concomitant]
  15. B12 (CYANOCOBALAMIN-TANNIN COMPLEX) [Concomitant]
  16. VENTAVIS [Concomitant]
  17. NEPHRO-VITE (VITAMINS NOS) [Concomitant]
  18. VITAMIN D [Concomitant]
  19. ASCORBIC ACID [Concomitant]
  20. ALBUTEROL (SALBUTAMOL SULFATE) [Concomitant]
  21. ATROVENT [Concomitant]

REACTIONS (7)
  - ALANINE AMINOTRANSFERASE INCREASED [None]
  - ASPARTATE AMINOTRANSFERASE INCREASED [None]
  - HAEMORRHAGE [None]
  - INTERNATIONAL NORMALISED RATIO FLUCTUATION [None]
  - PULMONARY EMBOLISM [None]
  - PULMONARY HYPERTENSION [None]
  - PYREXIA [None]
